FAERS Safety Report 5877559-0 (Version None)
Quarter: 2008Q3

REPORT INFORMATION
  Report Type: 
  Country: None (occurrence: None)
  Receive Date: 20080911
  Receipt Date: 20080903
  Transmission Date: 20090109
  Serious: Yes (Other)
  Sender: FDA-Public Use
  Company Number: PHHY2008ES13277

PATIENT
  Age: 35 Year
  Sex: Female

DRUGS (4)
  1. AREDIA [Suspect]
     Indication: HYPERCALCAEMIA
     Dosage: 30 MG/DAY
     Route: 042
     Dates: start: 20080529
  2. AREDIA [Suspect]
     Dosage: UNK
  3. ENANTYUM [Suspect]
     Dosage: 50MG/2ML
     Route: 042
     Dates: start: 20080527
  4. ENANTYUM [Suspect]
     Dosage: UNK

REACTIONS (10)
  - ALANINE AMINOTRANSFERASE INCREASED [None]
  - ASPARTATE AMINOTRANSFERASE INCREASED [None]
  - ATELECTASIS [None]
  - BLOOD ALKALINE PHOSPHATASE INCREASED [None]
  - BONE LESION [None]
  - GAMMA-GLUTAMYLTRANSFERASE INCREASED [None]
  - HEPATOTOXICITY [None]
  - HILAR LYMPHADENOPATHY [None]
  - OSTEOLYSIS [None]
  - PLEURAL EFFUSION [None]
